FAERS Safety Report 10207062 (Version 1)
Quarter: 2014Q2

REPORT INFORMATION
  Report Type: Spontaneous
  Country: VE (occurrence: VE)
  Receive Date: 20140530
  Receipt Date: 20140530
  Transmission Date: 20141212
  Serious: Yes (Hospitalization, Other)
  Sender: FDA-Public Use
  Company Number: VE-BAYER-2014-080045

PATIENT
  Age: 18 Year
  Sex: Female

DRUGS (1)
  1. MAGNEVISTAN [Suspect]
     Dosage: 4 ML, ONCE
     Dates: start: 20140526, end: 20140526

REACTIONS (3)
  - Respiratory distress [Recovering/Resolving]
  - Laryngeal oedema [Recovering/Resolving]
  - Hypotonia [Recovering/Resolving]
